FAERS Safety Report 5169861-5 (Version None)
Quarter: 2006Q4

REPORT INFORMATION
  Report Type: 
  Country: None (occurrence: None)
  Receive Date: 20061212
  Receipt Date: 20060911
  Transmission Date: 20070319
  Serious: No
  Sender: FDA-Public Use
  Company Number: US-AMGEN-KDL193040

PATIENT
  Age: 41 Year
  Sex: Female

DRUGS (1)
  1. SENSIPAR [Suspect]
     Indication: HYPERPARATHYROIDISM SECONDARY
     Route: 065
     Dates: start: 20060101

REACTIONS (6)
  - ALOPECIA [None]
  - DEPRESSION [None]
  - DRY SKIN [None]
  - MENSTRUAL DISORDER [None]
  - TRICHORRHEXIS [None]
  - WEIGHT LOSS POOR [None]
